FAERS Safety Report 26136421 (Version 3)
Quarter: 2025Q4

REPORT INFORMATION
  Report Type: Spontaneous
  Country: JP (occurrence: JP)
  Receive Date: 20251209
  Receipt Date: 20251230
  Transmission Date: 20260117
  Serious: Yes (Death, Life-Threatening, Hospitalization)
  Sender: AMGEN
  Company Number: JP-AMGEN-JPNSP2025238594

PATIENT
  Age: 70 Year
  Sex: Male

DRUGS (3)
  1. MVASI [Suspect]
     Active Substance: BEVACIZUMAB-AWWB
     Indication: Non-small cell lung cancer metastatic
     Dosage: UNK, (DRIP INFUSION)
     Route: 040
  2. CARBOPLATIN [Concomitant]
     Active Substance: CARBOPLATIN
     Indication: Non-small cell lung cancer metastatic
  3. PACLITAXEL [Concomitant]
     Active Substance: PACLITAXEL
     Indication: Non-small cell lung cancer metastatic

REACTIONS (8)
  - Bronchial obstruction [Fatal]
  - Pneumonia [Unknown]
  - Oesophagobronchial fistula [Unknown]
  - Non-small cell lung cancer metastatic [Unknown]
  - Tracheal obstruction [Unknown]
  - Paralysis recurrent laryngeal nerve [Unknown]
  - Bradycardia [Unknown]
  - Atelectasis [Unknown]
